FAERS Safety Report 17191665 (Version 1)
Quarter: 2020Q1

REPORT INFORMATION
  Report Type: Spontaneous
  Country: US (occurrence: US)
  Receive Date: 20191222
  Receipt Date: 20191222
  Transmission Date: 20200409
  Serious: Yes (Other)
  Sender: FDA-Public Use
  Company Number: None

PATIENT
  Age: 56 Year
  Sex: Male
  Weight: 74.25 kg

DRUGS (2)
  1. GOODY^S HEADACHE POWDER [Concomitant]
  2. TORADOL [Suspect]
     Active Substance: KETOROLAC TROMETHAMINE
     Indication: ROTATOR CUFF SYNDROME
     Route: 042
     Dates: start: 20191219, end: 20191219

REACTIONS (3)
  - Headache [None]
  - Nausea [None]
  - Dyspnoea [None]

NARRATIVE: CASE EVENT DATE: 20191219
